FAERS Safety Report 8914245 (Version 1)
Quarter: 2012Q4

REPORT INFORMATION
  Report Type: 
  Country: US (occurrence: US)
  Receive Date: 20121119
  Receipt Date: 20121119
  Transmission Date: 20130627
  Serious: Yes (Hospitalization)
  Sender: FDA-Public Use
  Company Number: US-PFIZER INC-2006008739

PATIENT
  Age: 80 Year
  Sex: Female

DRUGS (6)
  1. IBUPROFEN [Suspect]
     Indication: OSTEOARTHRITIS
     Dosage: UNK
     Route: 048
     Dates: start: 200509, end: 200511
  2. DAYPRO [Suspect]
     Indication: OSTEOARTHRITIS
     Dosage: 600 mg, 2x/day
     Route: 048
     Dates: start: 1997, end: 200511
  3. OXYBUTYNIN [Suspect]
     Indication: URINARY INCONTINENCE
     Dosage: 1 every 2 Weeks
     Route: 062
     Dates: start: 2003
  4. DITROPAN XL [Concomitant]
     Route: 065
     Dates: start: 2003
  5. ROBINUL [Concomitant]
     Route: 065
     Dates: start: 1990
  6. PROCHLORPERAZINE [Concomitant]
     Route: 065
     Dates: start: 1990

REACTIONS (4)
  - Haematochezia [Recovered/Resolved]
  - Colitis ulcerative [Recovering/Resolving]
  - Irritable bowel syndrome [Recovering/Resolving]
  - Drug ineffective [Unknown]
